FAERS Safety Report 10730798 (Version 2)
Quarter: 2015Q1

REPORT INFORMATION
  Report Type: Other
  Country: CA (occurrence: CA)
  Receive Date: 20150122
  Receipt Date: 20150122
  Transmission Date: 20150721
  Serious: Yes (Life-Threatening)
  Sender: FDA-Public Use
  Company Number: CA-APOTEX-2015AP005287

PATIENT
  Age: 58 Year
  Sex: Female
  Weight: 70 kg

DRUGS (4)
  1. APO-DICLO SR [Suspect]
     Active Substance: DICLOFENAC
     Indication: PAIN MANAGEMENT
     Dosage: 75 MG, BID
     Route: 048
  2. DILTIAZEM [Concomitant]
     Active Substance: DILTIAZEM
     Indication: PRODUCT USED FOR UNKNOWN INDICATION
     Dosage: UNK
     Route: 065
  3. ULTRAVATE                          /01186802/ [Concomitant]
     Indication: PRODUCT USED FOR UNKNOWN INDICATION
     Dosage: UNK
     Route: 065
  4. TYLENOL [Concomitant]
     Active Substance: ACETAMINOPHEN
     Indication: PRODUCT USED FOR UNKNOWN INDICATION
     Dosage: UNK
     Route: 065

REACTIONS (2)
  - Oropharyngeal pain [Recovered/Resolved]
  - Haemoptysis [Recovered/Resolved]
